FAERS Safety Report 5549467-6 (Version None)
Quarter: 2007Q4

REPORT INFORMATION
  Report Type: 
  Country: None (occurrence: None)
  Receive Date: 20071212
  Receipt Date: 20071205
  Transmission Date: 20080405
  Serious: Yes (Hospitalization)
  Sender: FDA-Public Use
  Company Number: US-JNJFOC-20071201731

PATIENT
  Sex: Female
  Weight: 53.4 kg

DRUGS (5)
  1. DOXIL [Suspect]
     Indication: OVARIAN CANCER
     Route: 042
  2. ENOXAPARIN SODIUM [Concomitant]
     Route: 058
  3. LORAZEPAM [Concomitant]
     Route: 048
  4. MORPHINE [Concomitant]
     Dosage: AS NEEDED
     Route: 042
  5. PANTOPRAZOLE SODIUM [Concomitant]
     Route: 042

REACTIONS (4)
  - ERYTHEMA [None]
  - RASH [None]
  - SMALL INTESTINAL OBSTRUCTION [None]
  - ULCER [None]
